FAERS Safety Report 22081850 (Version 1)
Quarter: 2023Q1

REPORT INFORMATION
  Report Type: Spontaneous
  Country: IN (occurrence: IN)
  Receive Date: 20230310
  Receipt Date: 20230310
  Transmission Date: 20230418
  Serious: Yes (Other)
  Sender: FDA-Public Use
  Company Number: IN-DENTSPLY-2023SCDP000072

PATIENT
  Age: 30 Year
  Sex: Female

DRUGS (2)
  1. LIDOCAINE [Suspect]
     Active Substance: LIDOCAINE
     Indication: Spinal myelogram
     Dosage: 15 MILLILITER OF 2% PRESERVATIVE-FREE LIGNOCAINE (300 MG)
     Route: 037
  2. IOHEXOL [Concomitant]
     Active Substance: IOHEXOL
     Indication: Spinal myelogram
     Dosage: 15 MILLILITER

REACTIONS (3)
  - Paraplegia [Recovered/Resolved]
  - Accidental overdose [Unknown]
  - Wrong product administered [Unknown]
